FAERS Safety Report 7869581-X (Version None)
Quarter: 2011Q4

REPORT INFORMATION
  Report Type: 
  Country: None (occurrence: None)
  Receive Date: 20111028
  Receipt Date: 20110105
  Transmission Date: 20120403
  Serious: No
  Sender: FDA-Public Use
  Company Number: US-AMGEN-USASP2011000718

PATIENT
  Age: 61 Year
  Sex: Male

DRUGS (3)
  1. ENBREL [Suspect]
     Dosage: UNK
     Dates: start: 20101204
  2. HUMIRA [Concomitant]
     Dosage: UNK
     Dates: start: 20100101
  3. ENBREL [Suspect]
     Indication: PSORIASIS
     Dosage: 50 MG, QWK
     Dates: start: 20080401, end: 20090401

REACTIONS (2)
  - LIVER FUNCTION TEST ABNORMAL [None]
  - PSORIASIS [None]
